FAERS Safety Report 18363945 (Version 1)
Quarter: 2020Q4

REPORT INFORMATION
  Report Type: Spontaneous
  Country: DE (occurrence: DE)
  Receive Date: 20201009
  Receipt Date: 20201009
  Transmission Date: 20210114
  Serious: Yes (Hospitalization)
  Sender: FDA-Public Use
  Company Number: DE-JNJFOC-20201005937

PATIENT
  Age: 19 Year
  Sex: Male

DRUGS (2)
  1. HALDOL [Suspect]
     Active Substance: HALOPERIDOL
     Indication: PRODUCT USED FOR UNKNOWN INDICATION
     Dosage: 5 MILLIGRAM DAILY; USED 3 TABLETS
     Route: 048
     Dates: start: 2020
  2. RITALIN [Concomitant]
     Active Substance: METHYLPHENIDATE HYDROCHLORIDE
     Dosage: TOOK THE DRUG NOT PERMANENTLY
     Route: 065

REACTIONS (2)
  - Respiratory muscle weakness [Recovering/Resolving]
  - Mechanical ventilation [Recovering/Resolving]
